FAERS Safety Report 20358894 (Version 2)
Quarter: 2022Q1

REPORT INFORMATION
  Report Type: Spontaneous
  Country: JP (occurrence: JP)
  Receive Date: 20220120
  Receipt Date: 20220221
  Transmission Date: 20220423
  Serious: Yes (Other)
  Sender: FDA-Public Use
  Company Number: JP-SA-2019SA230974

PATIENT
  Age: 14 Year
  Sex: Female
  Weight: 43.8 kg

DRUGS (10)
  1. SABRIL [Suspect]
     Active Substance: VIGABATRIN
     Indication: Infantile spasms
     Dosage: 500 MG, BID
     Route: 048
     Dates: start: 20170708, end: 20171214
  2. SABRIL [Suspect]
     Active Substance: VIGABATRIN
     Dosage: 750 MG, BID
     Route: 048
     Dates: start: 20171215, end: 20180118
  3. SABRIL [Suspect]
     Active Substance: VIGABATRIN
     Dosage: 1000 MG, BID
     Route: 048
     Dates: start: 20180119, end: 20180419
  4. SABRIL [Suspect]
     Active Substance: VIGABATRIN
     Dosage: 1250 MG, BID
     Route: 048
     Dates: start: 20180420, end: 20180708
  5. SABRIL [Suspect]
     Active Substance: VIGABATRIN
     Dosage: 1500 MG, BID
     Route: 048
     Dates: start: 20180709, end: 20181008
  6. SABRIL [Suspect]
     Active Substance: VIGABATRIN
     Dosage: 750 MG, BID
     Route: 048
     Dates: start: 20181009, end: 20181216
  7. SABRIL [Suspect]
     Active Substance: VIGABATRIN
     Dosage: 500 MG, BID
     Route: 048
     Dates: start: 20181217, end: 20190318
  8. VALPROATE SODIUM [Concomitant]
     Active Substance: VALPROATE SODIUM
     Indication: Infantile spasms
     Dosage: DAILY DOSE: 500 MG
     Route: 048
  9. LAMICTAL [Concomitant]
     Active Substance: LAMOTRIGINE
     Indication: Infantile spasms
     Dosage: DAILY DOSE: 90 MG
     Route: 048
     Dates: end: 20181226
  10. LAMICTAL [Concomitant]
     Active Substance: LAMOTRIGINE
     Dosage: DAILY DOSE: 100 MG
     Route: 048
     Dates: start: 20181227

REACTIONS (2)
  - Retinogram abnormal [Recovered/Resolved]
  - Drug ineffective [Unknown]

NARRATIVE: CASE EVENT DATE: 20171006
